FAERS Safety Report 6064679-3 (Version None)
Quarter: 2009Q1

REPORT INFORMATION
  Report Type: 
  Country: None (occurrence: None)
  Receive Date: 20090204
  Receipt Date: 20080620
  Transmission Date: 20090719
  Serious: No
  Sender: FDA-Public Use
  Company Number: A0726878A

PATIENT
  Age: 44 Year
  Sex: Female

DRUGS (7)
  1. ARIXTRA [Suspect]
     Indication: HYPERCOAGULATION
     Dosage: 2.5MG PER DAY
     Route: 058
     Dates: start: 20080505
  2. MEDIPREN [Concomitant]
  3. BROVEL [Concomitant]
  4. LUPRON [Concomitant]
  5. DOXYCYCLINE [Concomitant]
  6. DEXAMETHASONE [Concomitant]
  7. ASPIRIN [Concomitant]

REACTIONS (3)
  - INJECTION SITE HAEMATOMA [None]
  - INJECTION SITE PAIN [None]
  - PRODUCT QUALITY ISSUE [None]
